FAERS Safety Report 5524003-9 (Version None)
Quarter: 2007Q4

REPORT INFORMATION
  Report Type: 
  Country: None (occurrence: None)
  Receive Date: 20071121
  Receipt Date: 20071114
  Transmission Date: 20080405
  Serious: Yes (Disabling, Other)
  Sender: FDA-Public Use
  Company Number: BR-ABBOTT-07P-020-0425513-00

PATIENT
  Age: 12 Year
  Sex: Male
  Weight: 57 kg

DRUGS (4)
  1. HUMIRA [Suspect]
     Indication: RHEUMATOID ARTHRITIS
     Route: 058
     Dates: start: 20070901
  2. HUMIRA [Suspect]
  3. INDOMETHACIN [Concomitant]
     Indication: ANTIINFLAMMATORY THERAPY
     Route: 048
     Dates: start: 20050101
  4. METHOTREXATE [Concomitant]
     Indication: RHEUMATOID ARTHRITIS
     Dates: start: 20060101

REACTIONS (3)
  - ASTHENIA [None]
  - GAIT DISTURBANCE [None]
  - WHEELCHAIR USER [None]
